FAERS Safety Report 5558548-2 (Version None)
Quarter: 2007Q4

REPORT INFORMATION
  Report Type: 
  Country: None (occurrence: None)
  Receive Date: 20071214
  Receipt Date: 20071204
  Transmission Date: 20080405
  Serious: Yes (Other)
  Sender: FDA-Public Use
  Company Number: US-PFIZER INC-2007102603

PATIENT
  Sex: Female
  Weight: 86.363 kg

DRUGS (5)
  1. LYRICA [Suspect]
     Indication: FIBROMYALGIA
     Dates: start: 20070824, end: 20070901
  2. TEGRETOL [Suspect]
     Indication: FIBROMYALGIA
     Dates: start: 20071114, end: 20071101
  3. TYLENOL (CAPLET) [Suspect]
     Indication: FIBROMYALGIA
  4. ALL OTHER THERAPEUTIC PRODUCTS [Concomitant]
  5. KLONOPIN [Concomitant]

REACTIONS (4)
  - DEPRESSION [None]
  - HEADACHE [None]
  - PARALYSIS [None]
  - SKIN DISORDER [None]
